FAERS Safety Report 16708544 (Version 2)
Quarter: 2019Q3

REPORT INFORMATION
  Report Type: Spontaneous
  Country: BR (occurrence: BR)
  Receive Date: 20190816
  Receipt Date: 20190909
  Transmission Date: 20191004
  Serious: Yes (Hospitalization, Other)
  Sender: FDA-Public Use
  Company Number: BR-AMGEN-BRASP2019130369

PATIENT
  Age: 45 Year

DRUGS (13)
  1. NEULASTIM [Suspect]
     Active Substance: PEGFILGRASTIM
     Indication: PRODUCT USED FOR UNKNOWN INDICATION
     Dosage: UNK
     Route: 065
  2. CYCLOPHOSPHAMIDE. [Concomitant]
     Active Substance: CYCLOPHOSPHAMIDE
     Indication: T-CELL LYMPHOMA
     Dosage: UNK
  3. ETOPOSIDE. [Concomitant]
     Active Substance: ETOPOSIDE
     Indication: T-CELL LYMPHOMA
     Dosage: UNK
  4. ETOPOSIDE. [Concomitant]
     Active Substance: ETOPOSIDE
     Indication: NON-HODGKIN^S LYMPHOMA
  5. RITUXIMAB. [Concomitant]
     Active Substance: RITUXIMAB
     Indication: NON-HODGKIN^S LYMPHOMA
  6. PREDNISONE. [Concomitant]
     Active Substance: PREDNISONE
     Indication: T-CELL LYMPHOMA
     Dosage: UNK
  7. RITUXIMAB. [Concomitant]
     Active Substance: RITUXIMAB
     Indication: T-CELL LYMPHOMA
     Dosage: UNK
  8. DOXORUBICIN [Concomitant]
     Active Substance: DOXORUBICIN
     Indication: T-CELL LYMPHOMA
     Dosage: UNK
  9. DOXORUBICIN [Concomitant]
     Active Substance: DOXORUBICIN
     Indication: NON-HODGKIN^S LYMPHOMA
  10. VINCRISTINE [Concomitant]
     Active Substance: VINCRISTINE
     Indication: T-CELL LYMPHOMA
     Dosage: UNK
  11. VINCRISTINE [Concomitant]
     Active Substance: VINCRISTINE
     Indication: NON-HODGKIN^S LYMPHOMA
  12. CYCLOPHOSPHAMIDE. [Concomitant]
     Active Substance: CYCLOPHOSPHAMIDE
     Indication: NON-HODGKIN^S LYMPHOMA
  13. PREDNISONE. [Concomitant]
     Active Substance: PREDNISONE
     Indication: NON-HODGKIN^S LYMPHOMA

REACTIONS (2)
  - Febrile neutropenia [Unknown]
  - Drug ineffective [Unknown]
